FAERS Safety Report 12956766 (Version 1)
Quarter: 2016Q4

REPORT INFORMATION
  Report Type: Spontaneous
  Country: FR (occurrence: FR)
  Receive Date: 20161118
  Receipt Date: 20161118
  Transmission Date: 20170207
  Serious: Yes (Hospitalization)
  Sender: FDA-Public Use
  Company Number: FR-CANTON LABORATORIES, LLC-1059764

PATIENT
  Age: 85 Year
  Sex: Female

DRUGS (12)
  1. EXELON [Concomitant]
     Active Substance: RIVASTIGMINE TARTRATE
  2. ATACAND [Concomitant]
     Active Substance: CANDESARTAN CILEXETIL
  3. ATARAX [Concomitant]
     Active Substance: HYDROXYZINE\HYDROXYZINE HYDROCHLORIDE
  4. INEXIUM (ESOMEPRAZOLE) [Concomitant]
     Active Substance: ESOMEPRAZOLE
  5. AMIODARONE HCL [Concomitant]
     Active Substance: AMIODARONE HYDROCHLORIDE
  6. FOSAVANCE (ALENDRONIC ACID, CHOLECALCIFEROL) [Concomitant]
  7. SECTRAL [Concomitant]
     Active Substance: ACEBUTOLOL HYDROCHLORIDE
  8. ELIQUIS [Suspect]
     Active Substance: APIXABAN
     Route: 048
     Dates: end: 20160910
  9. TIANEPTINE [Concomitant]
     Active Substance: TIANEPTINE
  10. LEVOTHYROXINE. [Concomitant]
     Active Substance: LEVOTHYROXINE
  11. ANAPROX DS [Suspect]
     Active Substance: NAPROXEN SODIUM
     Indication: SCIATICA
     Route: 048
     Dates: start: 20160908, end: 20160910
  12. LASILIX (FUROSEMIDE) [Concomitant]
     Active Substance: FUROSEMIDE

REACTIONS (1)
  - Muscle haemorrhage [Recovering/Resolving]

NARRATIVE: CASE EVENT DATE: 20160910
